FAERS Safety Report 12231407 (Version 3)
Quarter: 2016Q2

REPORT INFORMATION
  Report Type: Spontaneous
  Country: US (occurrence: US)
  Receive Date: 20160401
  Receipt Date: 20160616
  Transmission Date: 20160815
  Serious: No
  Sender: FDA-Public Use
  Company Number: US-PFIZER INC-2016147108

PATIENT
  Age: 52 Year
  Sex: Female

DRUGS (1)
  1. XELJANZ [Suspect]
     Active Substance: TOFACITINIB CITRATE
     Indication: RHEUMATOID ARTHRITIS
     Dosage: 5 MG, 2X/DAY
     Route: 048
     Dates: start: 201510

REACTIONS (12)
  - Cough [Unknown]
  - Blood potassium decreased [Unknown]
  - Muscle spasms [Not Recovered/Not Resolved]
  - Drug dose omission [Unknown]
  - Blood cholesterol increased [Recovering/Resolving]
  - Condition aggravated [Unknown]
  - Arthralgia [Recovering/Resolving]
  - Nasopharyngitis [Recovered/Resolved]
  - Sinus congestion [Unknown]
  - Hypersensitivity [Recovered/Resolved]
  - Inflammation [Not Recovered/Not Resolved]
  - Tooth fracture [Unknown]

NARRATIVE: CASE EVENT DATE: 2015
